FAERS Safety Report 11140589 (Version 1)
Quarter: 2015Q2

REPORT INFORMATION
  Report Type: Spontaneous
  Country: US (occurrence: US)
  Receive Date: 20150527
  Receipt Date: 20150527
  Transmission Date: 20150821
  Serious: No
  Sender: FDA-Public Use
  Company Number: US-MALLINCKRODT-QSC-2014-0791

PATIENT
  Age: 49 Year
  Sex: Female
  Weight: 86.17 kg

DRUGS (3)
  1. LEVOTHYROXINE [Concomitant]
     Active Substance: LEVOTHYROXINE
     Dosage: UNK
  2. H.P. ACTHAR [Suspect]
     Active Substance: CORTICOTROPIN
     Indication: RHEUMATOID ARTHRITIS
     Dosage: 0.1 ML, BIW
     Route: 058
     Dates: start: 20140918, end: 201410
  3. H.P. ACTHAR [Suspect]
     Active Substance: CORTICOTROPIN
     Dosage: 1 ML, BIW
     Route: 058
     Dates: start: 20141017

REACTIONS (2)
  - Pain [Recovering/Resolving]
  - Incorrect dose administered [Recovered/Resolved]

NARRATIVE: CASE EVENT DATE: 2014
